FAERS Safety Report 14198518 (Version 9)
Quarter: 2020Q2

REPORT INFORMATION
  Report Type: Spontaneous
  Country: JP (occurrence: JP)
  Receive Date: 20171117
  Receipt Date: 20200403
  Transmission Date: 20200713
  Serious: Yes (Hospitalization, Other)
  Sender: FDA-Public Use
  Company Number: JP-BRISTOL-MYERS SQUIBB COMPANY-BMS-2017-103785

PATIENT
  Age: 70 Year
  Sex: Female
  Weight: 46.1 kg

DRUGS (2)
  1. PACLITAXEL. [Suspect]
     Active Substance: PACLITAXEL
     Indication: APOCRINE BREAST CARCINOMA
     Dosage: 110 MG, QD
     Route: 042
     Dates: start: 20170926
  2. OPDIVO [Suspect]
     Active Substance: NIVOLUMAB
     Indication: METASTATIC RENAL CELL CARCINOMA
     Dosage: 3 MG/KG, UNK
     Route: 041
     Dates: start: 20170515, end: 20170831

REACTIONS (3)
  - Hypersensitivity [Recovered/Resolved]
  - Arthralgia [Recovered/Resolved]
  - Apocrine breast carcinoma [Recovering/Resolving]

NARRATIVE: CASE EVENT DATE: 20170815
